FAERS Safety Report 19440302 (Version 1)
Quarter: 2021Q2

REPORT INFORMATION
  Report Type: Report from Study
  Country: ES (occurrence: ES)
  Receive Date: 20210621
  Receipt Date: 20210621
  Transmission Date: 20210717
  Serious: Yes (Other)
  Sender: FDA-Public Use
  Company Number: ES-SUN PHARMACEUTICAL INDUSTRIES LTD-2021R1-300766

PATIENT
  Age: 4 Year
  Sex: Male

DRUGS (1)
  1. VALPROIC ACID. [Suspect]
     Active Substance: VALPROIC ACID
     Indication: CORTICAL DYSPLASIA
     Dosage: 40 MILLIGRAM/KILOGRAM, DAILY
     Route: 065

REACTIONS (1)
  - Hyperammonaemia [Recovered/Resolved]
